FAERS Safety Report 9331132 (Version 2)
Quarter: 2013Q2

REPORT INFORMATION
  Report Type: Spontaneous
  Country: IT (occurrence: None)
  Receive Date: 20130531
  Receipt Date: 20130531
  Transmission Date: 20140414
  Serious: Yes (Hospitalization)
  Sender: FDA-Public Use
  Company Number: AUR-APL-2013-04321

PATIENT
  Age: 75 Year
  Sex: Female

DRUGS (3)
  1. AMOXICILLIN [Suspect]
     Indication: BRONCHITIS
     Route: 048
     Dates: start: 20130416, end: 20130417
  2. EUTIROX (LEVOTHYROXINE SODIUM) [Concomitant]
  3. ZESTORETIC (ZESTORETIC) [Concomitant]

REACTIONS (4)
  - Arthralgia [None]
  - Eczema [None]
  - Musculoskeletal pain [None]
  - Oedema peripheral [None]
